FAERS Safety Report 9348327 (Version 26)
Quarter: 2014Q4

REPORT INFORMATION
  Report Type: Report from Study
  Country: CA (occurrence: CA)
  Receive Date: 20130614
  Receipt Date: 20141128
  Transmission Date: 20150529
  Serious: Yes (Other)
  Sender: FDA-Public Use
  Company Number: CA-ROCHE-1140117

PATIENT
  Age: 56 Year
  Sex: Female
  Weight: 106.6 kg

DRUGS (11)
  1. ACTEMRA [Suspect]
     Active Substance: TOCILIZUMAB
     Route: 042
     Dates: start: 20141112, end: 20141112
  2. FOSAMAX [Concomitant]
     Active Substance: ALENDRONATE SODIUM
  3. DIOVAN HCT [Concomitant]
     Active Substance: HYDROCHLOROTHIAZIDE\VALSARTAN
  4. LEUCOVORIN [Concomitant]
     Active Substance: LEUCOVORIN
  5. NAPROXEN. [Concomitant]
     Active Substance: NAPROXEN
  6. ACTEMRA [Suspect]
     Active Substance: TOCILIZUMAB
     Indication: RHEUMATOID ARTHRITIS
     Dosage: 1ST RPAP DOSE
     Route: 042
     Dates: start: 20110804
  7. DILTIAZEM [Concomitant]
     Active Substance: DILTIAZEM
  8. AMITRIPTYLINE [Concomitant]
     Active Substance: AMITRIPTYLINE
     Route: 048
  9. ACTEMRA [Suspect]
     Active Substance: TOCILIZUMAB
     Route: 042
     Dates: start: 20120705
  10. PREDNISONE. [Concomitant]
     Active Substance: PREDNISONE
  11. AMITRIPTYLINE [Concomitant]
     Active Substance: AMITRIPTYLINE
     Route: 048

REACTIONS (18)
  - White blood cell count decreased [Unknown]
  - Herpes zoster [Unknown]
  - Weight decreased [Not Recovered/Not Resolved]
  - Hypotension [Unknown]
  - Foot fracture [Unknown]
  - Gastric infection [Recovered/Resolved]
  - Arthritis [Unknown]
  - Localised infection [Unknown]
  - Bursitis [Unknown]
  - Wound [Not Recovered/Not Resolved]
  - Hepatic enzyme increased [Unknown]
  - Nephrolithiasis [Not Recovered/Not Resolved]
  - Arthralgia [Not Recovered/Not Resolved]
  - Blood pressure increased [Unknown]
  - Bladder outlet obstruction [Not Recovered/Not Resolved]
  - Respiratory rate increased [Unknown]
  - Bile duct obstruction [Not Recovered/Not Resolved]
  - Infusion related reaction [Unknown]

NARRATIVE: CASE EVENT DATE: 201209
